FAERS Safety Report 4923950-6 (Version None)
Quarter: 2006Q1

REPORT INFORMATION
  Report Type: 
  Country: None (occurrence: None)
  Receive Date: 20060227
  Receipt Date: 20060214
  Transmission Date: 20060701
  Serious: Yes (Death, Hospitalization)
  Sender: FDA-Public Use
  Company Number: US-MERCK-0602USA04326

PATIENT
  Age: 57 Year
  Sex: Female
  Weight: 120 kg

DRUGS (3)
  1. VIOXX [Suspect]
     Indication: OSTEOARTHRITIS
     Route: 048
  2. VIOXX [Suspect]
     Indication: OSTEOPOROSIS
     Route: 048
  3. ANALGESIC OR ANESTHETIC (UNSPECIFIED) [Concomitant]
     Route: 065

REACTIONS (4)
  - ADVERSE EVENT [None]
  - ARTHROPATHY [None]
  - CARDIOVASCULAR DISORDER [None]
  - INJURY [None]
